FAERS Safety Report 12951941 (Version 4)
Quarter: 2017Q2

REPORT INFORMATION
  Report Type: Report from Study
  Country: JP (occurrence: JP)
  Receive Date: 20161117
  Receipt Date: 20170627
  Transmission Date: 20170830
  Serious: Yes (Death, Other)
  Sender: FDA-Public Use
  Company Number: JP-EISAI MEDICAL RESEARCH-EC-2016-022366

PATIENT
  Age: 80 Year
  Sex: Female
  Weight: 38 kg

DRUGS (7)
  1. AMLODIPINE [Concomitant]
     Active Substance: AMLODIPINE BESYLATE
  2. WARFARIN [Suspect]
     Active Substance: WARFARIN
     Indication: PROPHYLAXIS
     Dosage: UNKNOWN
     Route: 048
     Dates: end: 20151001
  3. MICARDIS [Concomitant]
     Active Substance: TELMISARTAN
  4. HIRUDOID [Concomitant]
     Active Substance: GLYCOSAMINOGLYCANS
  5. MYALONE: CREAM [Concomitant]
  6. LENVIMA [Suspect]
     Active Substance: LENVATINIB
     Indication: PAPILLARY THYROID CANCER
     Route: 048
     Dates: start: 20150826, end: 20150915
  7. LEVOTHYROXINE SODIUM HYDRATE [Concomitant]
     Active Substance: LEVOTHYROXINE SODIUM

REACTIONS (2)
  - Malignant neoplasm progression [Fatal]
  - International normalised ratio increased [Not Recovered/Not Resolved]

NARRATIVE: CASE EVENT DATE: 20150915
